FAERS Safety Report 21268605 (Version 1)
Quarter: 2022Q3

REPORT INFORMATION
  Report Type: Spontaneous
  Country: US (occurrence: None)
  Receive Date: 20220830
  Receipt Date: 20220830
  Transmission Date: 20221027
  Serious: No
  Sender: FDA-Public Use
  Company Number: 2022A283260

PATIENT
  Sex: Female
  Weight: 40.8 kg

DRUGS (1)
  1. BEVESPI AEROSPHERE [Suspect]
     Active Substance: FORMOTEROL FUMARATE\GLYCOPYRROLATE
     Indication: Emphysema
     Route: 055

REACTIONS (5)
  - Memory impairment [Unknown]
  - Device use issue [Unknown]
  - Product dose omission issue [Unknown]
  - Product use issue [Unknown]
  - Device malfunction [Unknown]
